FAERS Safety Report 10101541 (Version 2)
Quarter: 2014Q2

REPORT INFORMATION
  Report Type: Report from Study
  Country: CA (occurrence: CA)
  Receive Date: 20140424
  Receipt Date: 20140513
  Transmission Date: 20141212
  Serious: Yes (Other)
  Sender: FDA-Public Use
  Company Number: CA-JNJFOC-20140414410

PATIENT
  Age: 67 Year
  Sex: Male
  Weight: 88 kg

DRUGS (10)
  1. BISOPROLOL [Concomitant]
     Route: 048
  2. HYDROMORPH [Concomitant]
     Route: 065
  3. HYDROMORPH [Concomitant]
     Route: 065
  4. COVERSYL [Concomitant]
     Route: 048
  5. ROSUVASTATIN [Concomitant]
     Route: 065
  6. LACTULOSE [Concomitant]
     Route: 065
  7. PANTOLOC [Concomitant]
     Route: 048
  8. REMICADE [Suspect]
     Indication: ANKYLOSING SPONDYLITIS
     Route: 042
     Dates: start: 201211
  9. NAPROXEN [Concomitant]
     Route: 065
  10. TOLOXIN [Concomitant]
     Route: 048

REACTIONS (1)
  - Nerve compression [Recovered/Resolved]
